FAERS Safety Report 9514789 (Version 3)
Quarter: 2013Q4

REPORT INFORMATION
  Report Type: Report from Study
  Country: CO (occurrence: CO)
  Receive Date: 20130911
  Receipt Date: 20131015
  Transmission Date: 20140711
  Serious: Yes (Other)
  Sender: FDA-Public Use
  Company Number: CO-ROCHE-1271994

PATIENT
  Age: 80 Year
  Sex: Female
  Weight: 42 kg

DRUGS (3)
  1. LUCENTIS [Suspect]
     Indication: MACULAR DEGENERATION
     Dosage: DATE OF LAST DOSE : 16/JUL/2013.
     Route: 050
  2. LUCENTIS [Suspect]
     Route: 050
     Dates: start: 20130716
  3. LEVOTHYROXINE [Concomitant]
     Indication: THYROID DISORDER
     Route: 065

REACTIONS (3)
  - Rheumatic disorder [Recovering/Resolving]
  - Hypoaesthesia [Recovering/Resolving]
  - Bone pain [Recovering/Resolving]
